FAERS Safety Report 4588260-8 (Version None)
Quarter: 2005Q1

REPORT INFORMATION
  Report Type: 
  Country: None (occurrence: None)
  Receive Date: 20050216
  Receipt Date: 20050207
  Transmission Date: 20050727
  Serious: Yes (Other)
  Sender: FDA-Public Use
  Company Number: 2005-02-0609

PATIENT
  Age: 30 Year
  Sex: Female

DRUGS (7)
  1. GENTAMICIN [Suspect]
     Dosage: 80 MG Q8H INTRAVENOUS
     Route: 042
  2. BUPIVACAINE [Concomitant]
  3. LIDOCAINE [Concomitant]
  4. AMPICILLIN [Concomitant]
  5. KETOROLAC TROMETHAMINE [Concomitant]
  6. PETHIDINE [Concomitant]
  7. METAMIZOLE MAGNESIUM [Concomitant]

REACTIONS (9)
  - BIOPSY SKIN ABNORMAL [None]
  - DERMATITIS [None]
  - DERMATITIS CONTACT [None]
  - DRUG HYPERSENSITIVITY [None]
  - ECZEMA [None]
  - INJECTION SITE ERYTHEMA [None]
  - INJECTION SITE PRURITUS [None]
  - INJECTION SITE REACTION [None]
  - SKIN TEST POSITIVE [None]
